FAERS Safety Report 8607674-X (Version None)
Quarter: 2012Q3

REPORT INFORMATION
  Report Type: 
  Country: None (occurrence: None)
  Receive Date: 20120821
  Receipt Date: 20120810
  Transmission Date: 20120928
  Serious: Yes (Other)
  Sender: FDA-Public Use
  Company Number: GB-JNJFOC-20120807241

PATIENT
  Age: 17 Year
  Sex: Female

DRUGS (4)
  1. PALIPERIDONE [Suspect]
     Route: 030
  2. LITHIUM CARBONATE [Concomitant]
     Indication: PRODUCT USED FOR UNKNOWN INDICATION
     Route: 065
  3. PALIPERIDONE [Suspect]
     Indication: BIPOLAR DISORDER
     Route: 030
  4. PALIPERIDONE [Suspect]
     Route: 030

REACTIONS (3)
  - GALACTORRHOEA [None]
  - LOCAL REACTION [None]
  - BLOOD PROLACTIN INCREASED [None]
